FAERS Safety Report 6741727-6 (Version None)
Quarter: 2010Q2

REPORT INFORMATION
  Report Type: 
  Country: None (occurrence: None)
  Receive Date: 20100524
  Receipt Date: 20100506
  Transmission Date: 20101027
  Serious: Yes (Other)
  Sender: FDA-Public Use
  Company Number: BCN-AS-2010-RR-091

PATIENT
  Age: 56 Year
  Sex: Female

DRUGS (1)
  1. FLECAINIDE ACETATE [Suspect]
     Indication: ATRIAL FIBRILLATION
     Dosage: 50 MG, 2 IN1 DAY, ORAL
     Route: 048

REACTIONS (4)
  - ATRIAL FLUTTER [None]
  - DYSPNOEA [None]
  - PRESYNCOPE [None]
  - TACHYCARDIA [None]
